FAERS Safety Report 4384046-8 (Version None)
Quarter: 2004Q2

REPORT INFORMATION
  Report Type: 
  Country: None (occurrence: None)
  Receive Date: 20040621
  Receipt Date: 20040614
  Transmission Date: 20050107
  Serious: Yes (Hospitalization)
  Sender: FDA-Public Use
  Company Number: HQWYE021722MAR04

PATIENT
  Age: 3 Year
  Sex: Female
  Weight: 13.3 kg

DRUGS (10)
  1. RAPAMUNE [Suspect]
     Indication: PROPHYLAXIS AGAINST TRANSPLANT REJECTION
     Dosage: 0.5 MG 2X PER 1 DAY, ORAL
     Route: 048
     Dates: start: 20020507
  2. PRILOSEC [Concomitant]
  3. MIRAPEX [Concomitant]
  4. PROGRAF [Concomitant]
  5. PREDNISONE TAB [Concomitant]
  6. NIFEREX (POLYSACCHARIDE-IRON COMPLEX) [Concomitant]
  7. BACTROBAN (MUPIROCIN) [Concomitant]
  8. ERYTHROMYCIN [Concomitant]
  9. NORVASC [Concomitant]
  10. AUGMENTIN [Concomitant]

REACTIONS (9)
  - CONVULSION [None]
  - DIARRHOEA [None]
  - PNEUMONIA [None]
  - PYREXIA [None]
  - SCREAMING [None]
  - SINUSITIS [None]
  - SLEEP DISORDER DUE TO GENERAL MEDICAL CONDITION, INSOMNIA TYPE [None]
  - VOMITING [None]
  - X-RAY GASTROINTESTINAL TRACT ABNORMAL [None]
